FAERS Safety Report 24172804 (Version 1)
Quarter: 2024Q3

REPORT INFORMATION
  Report Type: Spontaneous
  Country: US (occurrence: US)
  Receive Date: 20240805
  Receipt Date: 20240805
  Transmission Date: 20241017
  Serious: Yes (Hospitalization)
  Sender: JOHNSON AND JOHNSON
  Company Number: US-JNJFOC-20240777417

PATIENT
  Age: 53 Year
  Sex: Female
  Weight: 53.572 kg

DRUGS (5)
  1. RISPERDAL [Suspect]
     Active Substance: RISPERIDONE
     Indication: Chorea
     Route: 065
     Dates: start: 20231108, end: 20240627
  2. VALBENAZINE [Suspect]
     Active Substance: VALBENAZINE
     Indication: Product used for unknown indication
     Route: 048
     Dates: start: 20211111, end: 20211122
  3. VALBENAZINE [Suspect]
     Active Substance: VALBENAZINE
     Route: 048
     Dates: start: 20211123, end: 20211207
  4. VALBENAZINE [Suspect]
     Active Substance: VALBENAZINE
     Route: 048
     Dates: start: 20211208
  5. IBUPROFEN [Concomitant]
     Active Substance: IBUPROFEN
     Indication: Headache
     Route: 065
     Dates: start: 2021

REACTIONS (1)
  - Parkinsonism [Recovered/Resolved]

NARRATIVE: CASE EVENT DATE: 20240627
